FAERS Safety Report 8241607-3 (Version None)
Quarter: 2012Q1

REPORT INFORMATION
  Report Type: 
  Country: None (occurrence: None)
  Receive Date: 20120328
  Receipt Date: 20120319
  Transmission Date: 20120608
  Serious: Yes (Hospitalization)
  Sender: FDA-Public Use
  Company Number: FR-ASTRAZENECA-2012SE11187

PATIENT
  Age: 750 Month
  Sex: Female
  Weight: 68 kg

DRUGS (10)
  1. POLYETHYLENE GLYCOL [Concomitant]
     Indication: CONSTIPATION
     Route: 048
     Dates: start: 20111219
  2. DUSPATALIN [Concomitant]
     Indication: CONSTIPATION
     Route: 048
     Dates: start: 20111219
  3. URBANYL [Concomitant]
     Indication: ANXIETY
     Route: 048
     Dates: start: 20120206
  4. TERCIAN [Concomitant]
     Indication: AGITATION
     Route: 048
     Dates: start: 20111219
  5. MELAXOSE [Concomitant]
     Indication: CONSTIPATION
     Route: 048
     Dates: start: 20111219
  6. QUETIAPINE FUMARATE [Suspect]
     Route: 048
     Dates: start: 20111224, end: 20120216
  7. OLMESARTAN MEDOXOMIL [Concomitant]
     Indication: HYPERTENSION
     Route: 048
     Dates: start: 20111219
  8. FLUVOXAMINE MALEATE [Concomitant]
     Indication: DEPRESSION
     Route: 048
     Dates: start: 20120120, end: 20120216
  9. QUETIAPINE FUMARATE [Suspect]
     Indication: BIPOLAR I DISORDER
     Dosage: DOSE PROGRESSIVELY INCREASE FROM 50 MG TO 300 MG PER DAY
     Route: 048
     Dates: start: 20111201, end: 20111223
  10. SPAGULAX [Concomitant]
     Indication: CONSTIPATION
     Route: 048
     Dates: start: 20111219

REACTIONS (3)
  - ERYTHEMA [None]
  - DERMATITIS BULLOUS [None]
  - SEDATION [None]
